FAERS Safety Report 8260467 (Version 3)
Quarter: 2012Q4

REPORT INFORMATION
  Report Type: Report from Study
  Country: US (occurrence: None)
  Receive Date: 20111116
  Receipt Date: 20120927
  Transmission Date: 20130627
  Serious: Yes (Other)
  Sender: FDA-Public Use
  Company Number: AUR-APL-2011-05782

PATIENT
  Age: 79 Year
  Sex: Female

DRUGS (53)
  1. MIRTAZAPINE [Suspect]
     Indication: DRUG USE FOR UNKNOWN INDICATION
  2. NAPROXEN [Suspect]
     Indication: DRUG USE FOR UNKNOWN INDICATION
  3. ZOLOFT (SERTRALINE) [Suspect]
     Indication: DRUG USE FOR UNKNOWN INDICATION
  4. NORVASC (AMLODIPINE BESILATE) [Suspect]
     Indication: DRUG USE FOR UNKNOWN INDICATION
  5. CELEBREX [Suspect]
     Indication: DRUG USE FOR UNKNOWN INDICATION
  6. CARDURA (DOXAZOSIN MESILATE) [Suspect]
     Indication: DRUG USE FOR UNKNOWN INDICATION
  7. CIPRO [Suspect]
     Indication: DRUG USE FOR UNKNOWN INDICATION
  8. DILTIAZEM (DILTIAZEM) (DILTIAZEM) [Suspect]
     Indication: DRUG USE FOR UNKNOWN INDICATION
  9. VASOTEC [Suspect]
     Indication: DRUG USE FOR UNKNOWN INDICATION
  10. MACROBID (NITROFURANTOIN) [Suspect]
     Indication: DRUG USE FOR UNKNOWN INDICATION
  11. TIAZAC [Suspect]
     Indication: DRUG USE FOR UNKNOWN INDICATION
  12. WELLBUTRIN XL [Suspect]
     Indication: DRUG USE FOR UNKNOWN INDICATION
  13. LEVAQUIN [Suspect]
     Indication: DRUG USE FOR UNKNOWN INDICATION
  14. TEKTURNA [Suspect]
     Indication: DRUG USE FOR UNKNOWN INDICATION
  15. TOPROL XL [Suspect]
     Indication: DRUG USE FOR UNKNOWN INDICATION
  16. PAXIL [Suspect]
     Indication: DRUG USE FOR UNKNOWN INDICATION
  17. FENTANYL (FENTANYL) [Suspect]
     Indication: DRUG USE FOR UNKNOWN INDICATION
  18. MICARDIS [Suspect]
     Indication: DRUG USE FOR UNKNOWN INDICATION
  19. PROZAC [Suspect]
     Indication: DRUG USE FOR UNKNOWN INDICATION
  20. CYMBALTA [Suspect]
     Indication: DRUG USE FOR UNKNOWN INDICATION
  21. DIOVAN [Suspect]
     Indication: DRUG USE FOR UNKNOWN INDICATION
  22. CARTIA XT [Suspect]
     Indication: DRUG USE FOR UNKNOWN INDICATION
  23. CLONIDINE HYDROCHLORIDE [Suspect]
     Indication: HYPERTENSION
     Route: 048
  24. PROTONIX (PANTOPRAZOLE) [Concomitant]
  25. EFFEXOR-XR (VENLAFAXINE HYDROCHLORIDE) [Concomitant]
  26. NIFEDIPINE (NIFEDIPINE) [Concomitant]
  27. COREG (CARVEDILOL) [Concomitant]
  28. HYDROCODONE W/ACETAMINOPHEN (VICODIN) [Concomitant]
  29. LIPITOR (ATORVASTATIN CALCIUM) [Concomitant]
  30. LEXAPRO (ESCITALOPRAM OXALATE) [Concomitant]
  31. LOTENSIN (CAPTOPRIL) [Concomitant]
  32. REQUIP (ROPINIROLE HYDROCHLORIDE) [Concomitant]
  33. BETHANECHOL CHLORIDE (BETHANECHOL CHLORIDE) [Concomitant]
  34. OXYCODONE HYDROCHLORIDE (OXYCODONE HYDROCHLORIDE) [Concomitant]
  35. LYRICA (PREGABALIN) [Concomitant]
  36. ALPRAZOLAM (ALPRAZOLAM) [Concomitant]
  37. ATIVAN (LORAZEPAM) [Concomitant]
  38. BELLADONNA AND PHENOBARBITONE (BELLADENAL) [Concomitant]
  39. LONOX (LOMOTIL) [Concomitant]
  40. LOMOTIL (LOMOTIL) [Concomitant]
  41. PROMETHAZINE HYDROCHLORIDE (PROMETHAZINE HYDROCHLORIDE) [Concomitant]
  42. HYDROXYZINE HYDROCHLORIDE (HYDROXYZINE HYDROCHLORIDE) [Concomitant]
  43. AMBIEN (ZOLPIDEM TARTRATE) [Concomitant]
  44. CLONAZEPAM (CLONAZEPAM) [Concomitant]
  45. OSCAL 500-D (CALCIUM D3) [Concomitant]
  46. MOMETASONE FUROATE (MOMETASONE FUROATE) [Concomitant]
  47. ESTRACE (ESTRADIOL) [Concomitant]
  48. LACLOTION (AMMONIUM LACTATE) [Concomitant]
  49. PLAVIX (CLOPIDOGREL) [Concomitant]
  50. DARVOCET (APOREX) [Concomitant]
  51. HYDROCHLOROTHIAZIDE (HYDROCHLOROTHIAZIDE) [Concomitant]
  52. KLOR-CON (POTASSIUM CHLORIDE) [Concomitant]
  53. CATAPRES-TTS (CLONIDINE) [Concomitant]

REACTIONS (27)
  - Pharyngeal oedema [None]
  - Hypotension [None]
  - Palpitations [None]
  - Dizziness [None]
  - Heart rate decreased [None]
  - Nervousness [None]
  - Agitation [None]
  - Anxiety [None]
  - Blood pressure increased [None]
  - Restless legs syndrome [None]
  - Diarrhoea [None]
  - Nausea [None]
  - Dyspepsia [None]
  - Nightmare [None]
  - Tremor [None]
  - Muscle spasms [None]
  - Feeling of body temperature change [None]
  - Arthralgia [None]
  - Disorientation [None]
  - Orthostatic hypotension [None]
  - Pruritus [None]
  - Blood creatine increased [None]
  - Abdominal pain [None]
  - Muscle spasms [None]
  - Feeling hot [None]
  - Peripheral coldness [None]
  - Drug hypersensitivity [None]
